FAERS Safety Report 11291337 (Version 2)
Quarter: 2015Q3

REPORT INFORMATION
  Report Type: Spontaneous
  Country: CA (occurrence: CA)
  Receive Date: 20150722
  Receipt Date: 20150903
  Transmission Date: 20151125
  Serious: Yes (Other)
  Sender: FDA-Public Use
  Company Number: CA-SA-2015SA103181

PATIENT
  Age: 30 Year
  Sex: Female

DRUGS (1)
  1. TUBERSOL [Suspect]
     Active Substance: TUBERCULIN PURIFIED PROTEIN DERIVATIVE
     Indication: TUBERCULIN TEST
     Dosage: SOLUTION INTRADERMAL (0.1 ML/5 IU )
     Route: 023
     Dates: start: 20150113, end: 20150113

REACTIONS (14)
  - Diarrhoea [Recovered/Resolved]
  - Rash generalised [Recovered/Resolved]
  - Asthma [Recovered/Resolved]
  - Pruritus generalised [Recovered/Resolved]
  - Dysphonia [Unknown]
  - Sensation of foreign body [Unknown]
  - Insomnia [Unknown]
  - Chest pain [Recovered/Resolved]
  - Feeling hot [Recovered/Resolved]
  - Wheezing [Recovered/Resolved]
  - Hypersensitivity [Unknown]
  - Dyspnoea [Unknown]
  - Productive cough [Recovered/Resolved]
  - Oropharyngeal discomfort [Recovered/Resolved]

NARRATIVE: CASE EVENT DATE: 20150113
